FAERS Safety Report 5024819-1 (Version None)
Quarter: 2006Q2

REPORT INFORMATION
  Report Type: 
  Country: None (occurrence: None)
  Receive Date: 20060426
  Receipt Date: 20060221
  Transmission Date: 20061013
  Serious: Yes (Other)
  Sender: FDA-Public Use
  Company Number: 2006026674

PATIENT
  Age: 63 Year
  Sex: Female
  Weight: 129.2752 kg

DRUGS (13)
  1. LYRICA [Suspect]
     Indication: NEUROPATHY
     Dosage: 150 MG (50 MG,3 IN 1 D)
     Dates: start: 20060217
  2. CATAFLAM [Concomitant]
  3. ACETAMINOPHEN [Concomitant]
  4. MAPROTILINE [Concomitant]
  5. AMBIEN [Concomitant]
  6. DIAZIDE (GLICLAZIDE) [Concomitant]
  7. NORCO [Concomitant]
  8. GLUCOSAMINE (GLUCOSAMINE) [Concomitant]
  9. VITAMIN E [Concomitant]
  10. B COMPLEX (NICOTINAMIDE, PYRIDOXINE HYDROCHLORIDE, RIBOFLAVIN, THIAMIN [Concomitant]
  11. ALLEGRA [Concomitant]
  12. NASACORT [Concomitant]
  13. VITAMIN C (VITAMIN C) [Concomitant]

REACTIONS (8)
  - DRY MOUTH [None]
  - DYSGEUSIA [None]
  - ELEVATED MOOD [None]
  - FEELING DRUNK [None]
  - FLATULENCE [None]
  - HYPOMANIA [None]
  - PARAESTHESIA ORAL [None]
  - SWELLING [None]
